FAERS Safety Report 4565812-2 (Version None)
Quarter: 2005Q1

REPORT INFORMATION
  Report Type: 
  Country: None (occurrence: None)
  Receive Date: 20050128
  Receipt Date: 20050117
  Transmission Date: 20050727
  Serious: Yes (Death, Hospitalization)
  Sender: FDA-Public Use
  Company Number: 2005EU000094

PATIENT
  Age: 60 Year
  Sex: Male

DRUGS (3)
  1. TACROLIMUS INJECTION(TACROLIMUS) INJECTION [Suspect]
     Indication: LIVER TRANSPLANT
     Dosage: 1.00 MG , BID, INTRAVENOUS
     Route: 042
  2. PREDNISOLONE [Concomitant]
  3. METHYLPREDNISOLONE [Concomitant]

REACTIONS (6)
  - AORTIC RUPTURE [None]
  - AORTITIS [None]
  - ASPERGILLOSIS [None]
  - CARDIAC ARREST [None]
  - FUNGAL ENDOCARDITIS [None]
  - PAIN [None]
